FAERS Safety Report 10881839 (Version 1)
Quarter: 2015Q1

REPORT INFORMATION
  Report Type: Spontaneous
  Country: US (occurrence: US)
  Receive Date: 20150303
  Receipt Date: 20150303
  Transmission Date: 20150721
  Serious: Yes (Other)
  Sender: FDA-Public Use
  Company Number: US-ROCHE-1520918

PATIENT
  Age: 54 Year
  Sex: Female
  Weight: 59.93 kg

DRUGS (8)
  1. PACLITAXEL. [Suspect]
     Active Substance: PACLITAXEL
     Indication: CERVIX CARCINOMA RECURRENT
     Dosage: X3 Q28 DAYS
     Route: 065
     Dates: start: 20140827
  2. RESTASIS [Concomitant]
     Active Substance: CYCLOSPORINE
     Dosage: 1 DROP, BOTH EYES
     Route: 065
  3. METHADONE [Concomitant]
     Active Substance: METHADONE HYDROCHLORIDE
     Dosage: 10 MG AND 20 MG TABLET BID 1 EACH
     Route: 048
  4. PREDNISOLONE ACETATE OPHTHALMIC [Concomitant]
     Dosage: 1 DROP BOTH EYES, QID 5 ML
     Route: 065
  5. CARBOPLATIN. [Suspect]
     Active Substance: CARBOPLATIN
     Indication: CERVIX CARCINOMA RECURRENT
     Dosage: X3 Q28 DAYS
     Route: 042
     Dates: start: 20140827
  6. AVASTIN [Suspect]
     Active Substance: BEVACIZUMAB
     Indication: CERVIX CARCINOMA RECURRENT
     Dosage: X3
     Route: 042
     Dates: start: 20140904, end: 20140918
  7. ENOXAPARIN [Concomitant]
     Active Substance: ENOXAPARIN
     Dosage: 40MG, 0.4 ML
     Route: 058
  8. APRISO [Concomitant]
     Active Substance: MESALAMINE
     Dosage: 4 CAP, PO, DAILY
     Route: 048

REACTIONS (17)
  - Vomiting [Unknown]
  - Abdominal pain [Unknown]
  - Constipation [Unknown]
  - Asthenia [Unknown]
  - Pollakiuria [Unknown]
  - Oedema peripheral [Unknown]
  - Headache [Unknown]
  - Crohn^s disease [Unknown]
  - Perineal pain [Unknown]
  - Skin fissures [Unknown]
  - Hypoaesthesia [Unknown]
  - Dyspnoea [Unknown]
  - Metastatic cutaneous Crohn^s disease [Recovered/Resolved]
  - Syncope [Unknown]
  - Nausea [Unknown]
  - Fatigue [Unknown]
  - Paraesthesia [Unknown]

NARRATIVE: CASE EVENT DATE: 20140930
